FAERS Safety Report 4584820-9 (Version None)
Quarter: 2005Q1

REPORT INFORMATION
  Report Type: 
  Country: None (occurrence: None)
  Receive Date: 20050214
  Receipt Date: 20050131
  Transmission Date: 20050727
  Serious: Yes (Other)
  Sender: FDA-Public Use
  Company Number: 2005023191

PATIENT
  Sex: Female
  Weight: 58.9676 kg

DRUGS (4)
  1. ZOLOFT [Suspect]
     Indication: DEPRESSION POSTMENOPAUSAL
     Dosage: 50 MG (50 MG, 1 IN 1 D)
     Dates: start: 20040101
  2. NARINE REPETABS (LORATADINE, PSEUDOEPHEDRINE SULFATE) [Concomitant]
  3. CIMICIFUGA RACEMOSA ROOT (CIMICIFUGA RACEMOSA ROOT) [Concomitant]
  4. ROFECOXIB [Concomitant]

REACTIONS (4)
  - CEREBELLAR ATROPHY [None]
  - MUSCLE TWITCHING [None]
  - RETINAL DETACHMENT [None]
  - VERTIGO [None]
